FAERS Safety Report 8615017-0 (Version None)
Quarter: 2012Q3

REPORT INFORMATION
  Report Type: 
  Country: None (occurrence: None)
  Receive Date: 20120823
  Receipt Date: 20120820
  Transmission Date: 20120928
  Serious: Yes (Other)
  Sender: FDA-Public Use
  Company Number: US-BAYER-2012-086174

PATIENT
  Age: 54 Year
  Sex: Female
  Weight: 68 kg

DRUGS (3)
  1. NEURONTIN [Suspect]
     Indication: NERVE INJURY
     Dosage: 300 MG, TID
     Route: 048
     Dates: start: 20020101
  2. ANTIINFLAMMATORY/ANTIRHEUMATIC PRODUCTS [Suspect]
     Indication: PRODUCT USED FOR UNKNOWN INDICATION
  3. ASPIRIN [Suspect]
     Indication: PRODUCT USED FOR UNKNOWN INDICATION

REACTIONS (5)
  - THROAT LESION [None]
  - GASTRIC DISORDER [None]
  - GENERAL SYMPTOM [None]
  - GASTROINTESTINAL DISORDER [None]
  - GASTRIC OPERATION [None]
